FAERS Safety Report 11508211 (Version 2)
Quarter: 2015Q4

REPORT INFORMATION
  Report Type: Spontaneous
  Country: ES (occurrence: ES)
  Receive Date: 20150915
  Receipt Date: 20151130
  Transmission Date: 20160304
  Serious: Yes (Hospitalization, Other)
  Sender: FDA-Public Use
  Company Number: ES-CELGENE-ESP-2015092049

PATIENT
  Sex: Male

DRUGS (1)
  1. AZACITIDINE. [Suspect]
     Active Substance: AZACITIDINE
     Indication: MYELODYSPLASTIC SYNDROME
     Route: 058

REACTIONS (5)
  - Pyoderma gangrenosum [Not Recovered/Not Resolved]
  - Pyrexia [Unknown]
  - Anal abscess [Unknown]
  - Pyoderma gangrenosum [Unknown]
  - Haemodynamic instability [Unknown]
